FAERS Safety Report 9745765 (Version 2)
Quarter: 2013Q4

REPORT INFORMATION
  Report Type: Spontaneous
  Country: NL (occurrence: NL)
  Receive Date: 20131211
  Receipt Date: 20131219
  Transmission Date: 20140711
  Serious: Yes (Hospitalization)
  Sender: FDA-Public Use
  Company Number: NL-B.I. PHARMACEUTICALS,INC./RIDGEFIELD-2013-BI-40832NL

PATIENT
  Sex: 0

DRUGS (1)
  1. BRILIQUE [Suspect]

REACTIONS (3)
  - Angioplasty [Unknown]
  - Malaise [Unknown]
  - Haemorrhage [Unknown]
